FAERS Safety Report 9900834 (Version 3)
Quarter: 2014Q2

REPORT INFORMATION
  Report Type: Spontaneous
  Country: JP (occurrence: JP)
  Receive Date: 20140217
  Receipt Date: 20140502
  Transmission Date: 20141212
  Serious: Yes (Life-Threatening)
  Sender: FDA-Public Use
  Company Number: JP-ROCHE-1344784

PATIENT
  Age: 68 Year
  Sex: Male
  Weight: 58 kg

DRUGS (11)
  1. TAMIFLU [Suspect]
     Indication: INFLUENZA
     Route: 048
     Dates: start: 20140201, end: 20140202
  2. MEIACT [Suspect]
     Indication: NASOPHARYNGITIS
     Route: 048
     Dates: start: 20140201, end: 201402
  3. IBUPROFEN [Suspect]
     Indication: PRODUCT USED FOR UNKNOWN INDICATION
     Route: 048
  4. VASOLAN [Concomitant]
     Indication: CARDIAC FAILURE CHRONIC
     Route: 048
  5. ALDACTONE A [Concomitant]
     Indication: CARDIAC FAILURE CHRONIC
     Dosage: ONCE IN THE MORNING
     Route: 048
  6. LASIX [Concomitant]
     Indication: CARDIAC FAILURE CHRONIC
     Dosage: ONCE IN THE MORNING
     Route: 048
  7. MUCODYNE [Concomitant]
     Indication: NASOPHARYNGITIS
     Route: 048
     Dates: start: 20140201, end: 201402
  8. TALION (JAPAN) [Concomitant]
     Indication: NASOPHARYNGITIS
     Route: 048
     Dates: start: 20140201, end: 201402
  9. SODIUM GUALENATE HYDRATE [Concomitant]
     Indication: NASOPHARYNGITIS
     Dosage: DOSAGE IS UNCERTAIN, DRUG REPORTED AS : AZUNOL GARGLE LIQUID
     Route: 049
     Dates: start: 20140201, end: 201402
  10. SYMBICORT [Concomitant]
     Dosage: DOSAGE IS UNCERTAIN
     Route: 065
     Dates: start: 20140201, end: 201402
  11. HOKUNALIN [Concomitant]
     Dosage: DOSAGE IS UNCERTAIN
     Route: 062
     Dates: start: 20140201, end: 201402

REACTIONS (2)
  - Hepatitis fulminant [Recovered/Resolved]
  - Renal failure [Recovered/Resolved]
